FAERS Safety Report 25343720 (Version 1)
Quarter: 2025Q2

REPORT INFORMATION
  Report Type: Spontaneous
  Country: JP (occurrence: JP)
  Receive Date: 20250521
  Receipt Date: 20250521
  Transmission Date: 20250717
  Serious: Yes (Other)
  Sender: REGENERON
  Company Number: JP-REGENERON PHARMACEUTICALS, INC.-2024-099882

PATIENT
  Age: 53 Year
  Sex: Female

DRUGS (1)
  1. LIBTAYO [Suspect]
     Active Substance: CEMIPLIMAB-RWLC
     Indication: Cervix carcinoma recurrent

REACTIONS (6)
  - Hypothyroidism [Unknown]
  - Diabetes mellitus [Unknown]
  - Autoimmune thyroiditis [Unknown]
  - Interstitial lung disease [Unknown]
  - Hyperthyroidism [Unknown]
  - Silent thyroiditis [Unknown]
